FAERS Safety Report 5620894-1 (Version None)
Quarter: 2008Q1

REPORT INFORMATION
  Report Type: 
  Country: None (occurrence: None)
  Receive Date: 20080208
  Receipt Date: 20080130
  Transmission Date: 20080703
  Serious: Yes (Death)
  Sender: FDA-Public Use
  Company Number: US-ABBOTT-08P-163-0436197-00

PATIENT
  Age: 19 Year
  Sex: Male

DRUGS (10)
  1. VALPROIC ACID [Suspect]
     Indication: DRUG USE FOR UNKNOWN INDICATION
     Route: 048
  2. VALPROIC ACID [Suspect]
     Dosage: NOT REPORTED
     Route: 065
  3. PAROXETINE [Suspect]
     Indication: DRUG USE FOR UNKNOWN INDICATION
     Route: 048
  4. PAROXETINE [Suspect]
     Dosage: NOT REPORTED
     Route: 065
  5. COCAINE [Suspect]
     Indication: DRUG USE FOR UNKNOWN INDICATION
     Route: 048
  6. COCAINE [Suspect]
     Dosage: NOT REPORTED
     Route: 065
  7. HEROIN [Suspect]
     Indication: DRUG USE FOR UNKNOWN INDICATION
     Route: 048
  8. HEROIN [Suspect]
     Dosage: NOT REPORTED
     Route: 065
  9. ETHANOL BEVERAGE [Suspect]
     Indication: DRUG USE FOR UNKNOWN INDICATION
     Route: 048
  10. ETHANOL BEVERAGE [Suspect]
     Dosage: NOT REPORTED
     Route: 065

REACTIONS (1)
  - COMPLETED SUICIDE [None]
